FAERS Safety Report 7278972-X (Version None)
Quarter: 2011Q1

REPORT INFORMATION
  Report Type: 
  Country: None (occurrence: None)
  Receive Date: 20110207
  Receipt Date: 20110126
  Transmission Date: 20110831
  Serious: Yes (Other)
  Sender: FDA-Public Use
  Company Number: PHHY2011NL06466

PATIENT
  Sex: Male

DRUGS (1)
  1. ZOMETA [Suspect]
     Indication: PROSTATE CANCER METASTATIC
     Dosage: 4 MG, PER 5 ML
     Dates: start: 20091002, end: 20110103

REACTIONS (2)
  - GENERAL PHYSICAL HEALTH DETERIORATION [None]
  - FATIGUE [None]
